FAERS Safety Report 8398282-7 (Version None)
Quarter: 2012Q2

REPORT INFORMATION
  Report Type: 
  Country: None (occurrence: None)
  Receive Date: 20120531
  Receipt Date: 20120523
  Transmission Date: 20120825
  Serious: Yes (Other)
  Sender: FDA-Public Use
  Company Number: JP-PFIZER INC-2012127764

PATIENT
  Age: 57 Year
  Sex: Male

DRUGS (1)
  1. AMPICILLIN SODIUM/SULBACTAM SODIUM [Suspect]
     Dosage: 6 G, 1X/DAY
     Route: 042

REACTIONS (3)
  - STAPHYLOCOCCAL INFECTION [None]
  - SWELLING [None]
  - ERYTHEMA [None]
